FAERS Safety Report 4904916-9 (Version None)
Quarter: 2006Q1

REPORT INFORMATION
  Report Type: 
  Country: None (occurrence: None)
  Receive Date: 20060208
  Receipt Date: 20051021
  Transmission Date: 20060701
  Serious: No
  Sender: FDA-Public Use
  Company Number: US-GLAXOSMITHKLINE-A0579168A

PATIENT
  Age: 56 Year
  Sex: Female

DRUGS (12)
  1. PAXIL [Suspect]
     Dosage: 10MG PER DAY
     Route: 048
     Dates: start: 20050101
  2. PAXIL [Suspect]
     Dosage: 10MG PER DAY
     Route: 048
  3. WELLBUTRIN [Suspect]
     Indication: DRUG USE FOR UNKNOWN INDICATION
     Dosage: 200MG TWICE PER DAY
     Route: 048
  4. WELLBUTRIN [Concomitant]
  5. DEXEDRINE [Concomitant]
  6. PLAVIX [Concomitant]
  7. THYROID TAB [Concomitant]
  8. FIORINAL [Concomitant]
  9. EXCEDRIN (MIGRAINE) [Concomitant]
  10. DIAZEPAM [Concomitant]
  11. NASONEX [Concomitant]
  12. ALLERGAN [Concomitant]

REACTIONS (3)
  - ANXIETY [None]
  - CRYING [None]
  - DRUG WITHDRAWAL SYNDROME [None]
